FAERS Safety Report 5524359-7 (Version None)
Quarter: 2007Q4

REPORT INFORMATION
  Report Type: 
  Country: None (occurrence: None)
  Receive Date: 20071121
  Receipt Date: 20071112
  Transmission Date: 20080405
  Serious: Yes (Other)
  Sender: FDA-Public Use
  Company Number: US-PFIZER INC-2007095912

PATIENT
  Sex: Female
  Weight: 77.1 kg

DRUGS (17)
  1. CHANTIX [Suspect]
     Indication: EX-SMOKER
  2. THEOPHYLLINE [Concomitant]
  3. NEXIUM [Concomitant]
  4. SPIRONOLACTONE [Concomitant]
  5. TOPROL-XL [Concomitant]
  6. OXYBUTYNIN CHLORIDE [Concomitant]
  7. LYRICA [Concomitant]
  8. ACYCLOVIR [Concomitant]
  9. COZAAR [Concomitant]
  10. HYDROCODONE BITARTRATE [Concomitant]
  11. VENLAFAXIINE HCL [Concomitant]
  12. SYNTHROID [Concomitant]
  13. NIASPAN [Concomitant]
  14. BENICAR [Concomitant]
  15. REQUIP [Concomitant]
  16. METFORMIN HYDROCHLORIDE [Concomitant]
  17. WELCHOL [Concomitant]

REACTIONS (3)
  - ABNORMAL DREAMS [None]
  - BLOOD THYROID STIMULATING HORMONE ABNORMAL [None]
  - MALAISE [None]
